FAERS Safety Report 5282289-2 (Version None)
Quarter: 2007Q1

REPORT INFORMATION
  Report Type: 
  Country: None (occurrence: None)
  Receive Date: 20070331
  Receipt Date: 20070320
  Transmission Date: 20070707
  Serious: Yes (Other)
  Sender: FDA-Public Use
  Company Number: US-PFIZER INC-2007023768

PATIENT
  Sex: Male
  Weight: 113.4 kg

DRUGS (15)
  1. CHANTIX [Suspect]
     Indication: SMOKING CESSATION THERAPY
     Route: 048
  2. MOMETASONE FUROATE [Suspect]
     Route: 055
  3. SPIRIVA [Concomitant]
     Route: 055
  4. ACETYLSALICYLIC ACID SRT [Concomitant]
  5. NOVOLOG [Concomitant]
  6. WARFARIN SODIUM [Concomitant]
  7. PACERONE [Concomitant]
  8. ATENOLOL [Concomitant]
  9. LISINOPRIL [Concomitant]
  10. SYNTHROID [Concomitant]
  11. ZETIA [Concomitant]
  12. PRILOSEC [Concomitant]
  13. MONTELUKAST SODIUM [Concomitant]
  14. NASAREL [Concomitant]
  15. KETOROLAC TROMETHAMINE [Concomitant]

REACTIONS (2)
  - BLOOD GLUCOSE INCREASED [None]
  - CANDIDIASIS [None]
